FAERS Safety Report 7702582-0 (Version None)
Quarter: 2011Q3

REPORT INFORMATION
  Report Type: 
  Country: None (occurrence: None)
  Receive Date: 20110823
  Receipt Date: 20110816
  Transmission Date: 20111222
  Serious: No
  Sender: FDA-Public Use
  Company Number: US-BIOGENIDEC-2011BI031538

PATIENT
  Sex: Female

DRUGS (6)
  1. AVONEX [Concomitant]
     Route: 030
  2. TYSABRI [Suspect]
     Indication: MULTIPLE SCLEROSIS
     Route: 042
     Dates: start: 20080110, end: 20110504
  3. AVONEX [Concomitant]
     Indication: MULTIPLE SCLEROSIS
     Route: 030
     Dates: start: 19990301
  4. AVONEX [Concomitant]
     Route: 030
     Dates: start: 20110723
  5. TYSABRI [Suspect]
     Route: 042
     Dates: start: 20050210, end: 20050210
  6. AVONEX [Concomitant]
     Route: 030
     Dates: start: 19920814

REACTIONS (1)
  - MALAISE [None]
